FAERS Safety Report 5052332-4 (Version None)
Quarter: 2006Q2

REPORT INFORMATION
  Report Type: 
  Country: None (occurrence: None)
  Receive Date: 20060614
  Receipt Date: 20060227
  Transmission Date: 20061013
  Serious: Yes (Other)
  Sender: FDA-Public Use
  Company Number: 438467

PATIENT
  Age: 46 Year
  Sex: Female

DRUGS (4)
  1. BONIVA [Suspect]
     Indication: DRUG USE FOR UNKNOWN INDICATION
     Dates: start: 20060226
  2. FLONASE [Concomitant]
  3. ULTRAM [Concomitant]
  4. SONATA [Concomitant]

REACTIONS (1)
  - URTICARIA [None]
